FAERS Safety Report 8344679-0 (Version None)
Quarter: 2012Q2

REPORT INFORMATION
  Report Type: 
  Country: None (occurrence: None)
  Receive Date: 20120402
  Receipt Date: 20111201
  Transmission Date: 20120825
  Serious: Yes (Other)
  Sender: FDA-Public Use
  Company Number: 11-001299

PATIENT
  Age: 87 Year
  Sex: Female

DRUGS (2)
  1. ATENOLOL [Concomitant]
  2. ESTRACE [Suspect]
     Indication: URINARY TRACT DISORDER
     Dosage: UNK, TWI, VAGINAL
     Route: 067
     Dates: start: 20101101

REACTIONS (3)
  - RASH PRURITIC [None]
  - SKIN DISCOLOURATION [None]
  - BREAST MASS [None]
